FAERS Safety Report 9747839 (Version 1)
Quarter: 2013Q4

REPORT INFORMATION
  Report Type: Spontaneous
  Country: US (occurrence: US)
  Receive Date: 20131212
  Receipt Date: 20131212
  Transmission Date: 20140711
  Serious: No
  Sender: FDA-Public Use
  Company Number: US-TEVA-384950USA

PATIENT
  Age: 26 Year
  Sex: Female
  Weight: 94.43 kg

DRUGS (1)
  1. PARAGARD 380A [Suspect]
     Indication: CONTRACEPTION
     Route: 015
     Dates: start: 20130103, end: 20130124

REACTIONS (1)
  - Pelvic pain [Recovered/Resolved]
